FAERS Safety Report 23253685 (Version 1)
Quarter: 2023Q4

REPORT INFORMATION
  Report Type: Spontaneous
  Country: US (occurrence: US)
  Receive Date: 20231202
  Receipt Date: 20231202
  Transmission Date: 20240110
  Serious: Yes (Death, Other)
  Sender: FDA-Public Use
  Company Number: US-ENDO-CASE-0047896

PATIENT
  Sex: Male

DRUGS (5)
  1. CLONAZEPAM [Suspect]
     Active Substance: CLONAZEPAM
  2. TRAMADOL HYDROCHLORIDE [Suspect]
     Active Substance: TRAMADOL HYDROCHLORIDE
  3. DIAZEPAM [Suspect]
     Active Substance: DIAZEPAM
  4. PERCOCET [Suspect]
     Active Substance: ACETAMINOPHEN\OXYCODONE HYDROCHLORIDE
  5. FENTANYL CITRATE [Suspect]
     Active Substance: FENTANYL CITRATE

REACTIONS (3)
  - Death [Fatal]
  - Dependence [Unknown]
  - Overdose [Unknown]
